FAERS Safety Report 6303069-2 (Version None)
Quarter: 2009Q3

REPORT INFORMATION
  Report Type: 
  Country: None (occurrence: None)
  Receive Date: 20090810
  Receipt Date: 20090729
  Transmission Date: 20100115
  Serious: Yes (Hospitalization)
  Sender: FDA-Public Use
  Company Number: AU-ROCHE-646723

PATIENT
  Sex: Male
  Weight: 83.1 kg

DRUGS (4)
  1. CAPECITABINE [Suspect]
     Indication: COLON CANCER
     Route: 048
     Dates: start: 20080812
  2. CAPECITABINE [Suspect]
     Dosage: CURRENT CYCLE 30 DAY FOLLOW UP. DOSE REDUCTION 25%
     Route: 048
     Dates: start: 20090106
  3. BEVACIZUMAB [Suspect]
     Indication: COLON CANCER
     Dosage: CYCLE 1
     Route: 042
     Dates: start: 20080812
  4. BEVACIZUMAB [Suspect]
     Dosage: CURRENT CYCLE 30 DAY FOLLOW UP
     Route: 042
     Dates: start: 20090623

REACTIONS (1)
  - PERICARDITIS [None]
